FAERS Safety Report 6065844-1 (Version None)
Quarter: 2009Q1

REPORT INFORMATION
  Report Type: 
  Country: None (occurrence: None)
  Receive Date: 20090205
  Receipt Date: 20090127
  Transmission Date: 20090719
  Serious: Yes (Hospitalization)
  Sender: FDA-Public Use
  Company Number: FR-JNJFOC-20090106320

PATIENT
  Age: 89 Year
  Sex: Female

DRUGS (6)
  1. OFLOCET [Suspect]
     Indication: PYELONEPHRITIS
     Dosage: FILM COATED TABLETS
     Route: 048
  2. ASPEGIC 325 [Concomitant]
     Route: 048
  3. ALDACTAZINE [Concomitant]
     Indication: HYPERTENSION
     Dosage: DOSE-0.5U
     Route: 048
  4. TIMOPTIC [Concomitant]
     Indication: GLAUCOMA
     Route: 047
  5. TANAKAN [Concomitant]
     Route: 048
  6. ROCEPHIN [Concomitant]
     Indication: ESCHERICHIA SEPSIS
     Route: 042

REACTIONS (2)
  - CARDIAC FAILURE [None]
  - STATUS EPILEPTICUS [None]
